FAERS Safety Report 4319582-3 (Version None)
Quarter: 2004Q1

REPORT INFORMATION
  Report Type: 
  Country: None (occurrence: None)
  Receive Date: 20040316
  Receipt Date: 20040302
  Transmission Date: 20041129
  Serious: Yes (Hospitalization)
  Sender: FDA-Public Use
  Company Number: USA040360666

PATIENT
  Age: 68 Year
  Sex: Female
  Weight: 68 kg

DRUGS (2)
  1. HUMALOG [Suspect]
     Dosage: 90 U/1 DAY
     Dates: start: 20030101
  2. HUMULIN R [Suspect]
     Dosage: 15 U/3 DAY

REACTIONS (5)
  - BLOOD POTASSIUM INCREASED [None]
  - CARDIAC FAILURE CONGESTIVE [None]
  - DIALYSIS [None]
  - PLATELET COUNT DECREASED [None]
  - RENAL FAILURE [None]
